FAERS Safety Report 4852074-1 (Version None)
Quarter: 2005Q4

REPORT INFORMATION
  Report Type: 
  Country: None (occurrence: None)
  Receive Date: 20051213
  Receipt Date: 20021021
  Transmission Date: 20060501
  Serious: Yes (Hospitalization)
  Sender: FDA-Public Use
  Company Number: CA-ROCHE-323865

PATIENT
  Age: 53 Year
  Sex: Female
  Weight: 55.6 kg

DRUGS (6)
  1. PEG-INTERFERON ALFA 2A (RO 25-8310) [Suspect]
     Route: 058
     Dates: start: 20020319, end: 20021015
  2. PLACEBO [Suspect]
     Dosage: WITH FOOD.
     Route: 048
     Dates: start: 20020319, end: 20021020
  3. D4T [Suspect]
     Indication: DRUG USE FOR UNKNOWN INDICATION
     Route: 065
     Dates: start: 20000218, end: 20021020
  4. 3TC [Suspect]
     Indication: DRUG USE FOR UNKNOWN INDICATION
     Route: 065
     Dates: start: 19900215, end: 20021020
  5. NELFINAVIR [Suspect]
     Indication: DRUG USE FOR UNKNOWN INDICATION
     Route: 065
     Dates: start: 20011201, end: 20021020
  6. PROMENSIL [Concomitant]
     Dates: start: 20010915

REACTIONS (3)
  - ASTHENIA [None]
  - FATIGUE [None]
  - LACTIC ACIDOSIS [None]
